FAERS Safety Report 10241218 (Version 1)
Quarter: 2014Q1

REPORT INFORMATION
  Report Type: Spontaneous
  Country: US (occurrence: None)
  Receive Date: 20140306
  Receipt Date: 20140306
  Transmission Date: 20141002
  Serious: Yes (Hospitalization)
  Sender: FDA-Public Use
  Company Number: 163-21880-13122895

PATIENT
  Sex: 0

DRUGS (3)
  1. REVLIMID (LENALIDOMIDE) (CAPSULES) [Suspect]
     Indication: PLASMA CELL MYELOMA
     Dosage: EVERY OTHER WEEK , PO  UNKNOWN - UNKNOWN THERAPY DATES
     Route: 048
  2. DEXAMETHASONE [Suspect]
     Indication: PLASMA CELL MYELOMA
     Dosage: 40 MG , 1 IN 1 D, PO UNKNOWN - UNKNOWN THERAPY DATES
     Route: 048
  3. SAR650984 [Concomitant]

REACTIONS (3)
  - Febrile neutropenia [None]
  - Fatigue [None]
  - Cough [None]
